FAERS Safety Report 13977337 (Version 1)
Quarter: 2017Q3

REPORT INFORMATION
  Report Type: Spontaneous
  Country: US (occurrence: US)
  Receive Date: 20170915
  Receipt Date: 20170915
  Transmission Date: 20171128
  Serious: No
  Sender: FDA-Public Use
  Company Number: US-LPDUSPRD-20160973

PATIENT
  Age: 45 Year
  Sex: Female

DRUGS (4)
  1. INJECTAFER [Suspect]
     Active Substance: FERRIC CARBOXYMALTOSE
     Dosage: 690 MG IN 250 ML OF NS
     Route: 042
     Dates: start: 20160923, end: 20160923
  2. MVI WITH MINERALS [Concomitant]
  3. MAG-OX [Concomitant]
     Active Substance: MAGNESIUM OXIDE
     Dosage: 400 MG
  4. GREEN TEA SUPPLEMENT [Concomitant]

REACTIONS (3)
  - Nausea [Recovered/Resolved]
  - Back pain [Recovered/Resolved]
  - Headache [Recovered/Resolved]

NARRATIVE: CASE EVENT DATE: 20160924
